FAERS Safety Report 10825047 (Version 1)
Quarter: 2015Q1

REPORT INFORMATION
  Report Type: Report from Study
  Country: US (occurrence: US)
  Receive Date: 20150219
  Receipt Date: 20150219
  Transmission Date: 20150721
  Serious: No
  Sender: FDA-Public Use
  Company Number: US-ABBVIE-14K-163-1319234-00

PATIENT
  Age: 12 Year
  Sex: Female
  Weight: 62.65 kg

DRUGS (3)
  1. MULTIVITAMIN [Concomitant]
     Active Substance: VITAMINS
     Indication: VITAMIN SUPPLEMENTATION
  2. HUMIRA [Suspect]
     Active Substance: ADALIMUMAB
     Indication: CROHN^S DISEASE
     Route: 058
     Dates: start: 20141106
  3. FOLIC ACID. [Concomitant]
     Active Substance: FOLIC ACID
     Indication: VITAMIN SUPPLEMENTATION

REACTIONS (4)
  - Injection site erythema [Recovering/Resolving]
  - Defaecation urgency [Recovered/Resolved]
  - Injection site pruritus [Recovering/Resolving]
  - Injection site papule [Recovering/Resolving]

NARRATIVE: CASE EVENT DATE: 20141204
